FAERS Safety Report 6936121-9 (Version None)
Quarter: 2010Q3

REPORT INFORMATION
  Report Type: 
  Country: None (occurrence: None)
  Receive Date: 20100819
  Receipt Date: 20100819
  Transmission Date: 20110219
  Serious: Yes (Hospitalization)
  Sender: FDA-Public Use
  Company Number: None

PATIENT
  Sex: Female

DRUGS (1)
  1. FENTANYL ACTAVIS [Suspect]
     Indication: ANALGESIC THERAPY
     Dosage: APPLY EVERY 72 HRS

REACTIONS (1)
  - DRUG INEFFECTIVE [None]
